FAERS Safety Report 12545471 (Version 2)
Quarter: 2016Q3

REPORT INFORMATION
  Report Type: Spontaneous
  Country: BR (occurrence: BR)
  Receive Date: 20160711
  Receipt Date: 20160715
  Transmission Date: 20161109
  Serious: Yes (Other)
  Sender: FDA-Public Use
  Company Number: BR-PFIZER INC-2016335688

PATIENT
  Age: 77 Year
  Sex: Female

DRUGS (11)
  1. LINEZOLID. [Suspect]
     Active Substance: LINEZOLID
     Indication: ENTEROBACTER INFECTION
     Dosage: 600 MG, EVERY 12 HOURS
     Route: 042
     Dates: start: 20160620, end: 20160629
  2. PIPERACILLIN/TAZOBACTAM [Suspect]
     Active Substance: PIPERACILLIN SODIUM\TAZOBACTAM SODIUM
     Dosage: 4.5 G, EVERY 8 HOURS
     Route: 042
     Dates: start: 20160615, end: 20160624
  3. MEROPENEM. [Suspect]
     Active Substance: MEROPENEM
     Dosage: 1 G, EVERY 8 HOURS
     Dates: start: 20160613, end: 20160615
  4. AMIKACIN [Suspect]
     Active Substance: AMIKACIN
     Dosage: 500 MG, EVERY 12 HOURS
     Route: 042
     Dates: start: 20160624, end: 20160625
  5. RIFAMPICIN [Suspect]
     Active Substance: RIFAMPIN
     Dosage: 300 MG, EVERY 12 HOURS
     Dates: start: 20160530, end: 20160620
  6. HYDRALAZINE [Suspect]
     Active Substance: HYDRALAZINE HYDROCHLORIDE
  7. CEFTAZIDIME. [Suspect]
     Active Substance: CEFTAZIDIME
     Dosage: 2 G, EVERY 8 HOURS
     Dates: start: 20160519, end: 20160530
  8. CIPROFLOXACIN. [Suspect]
     Active Substance: CIPROFLOXACIN
     Dosage: 400 MG, EVERY 12 HOURS
     Route: 042
     Dates: start: 20160615, end: 20160616
  9. TEICOPLANIN [Suspect]
     Active Substance: TEICOPLANIN
     Dosage: 400 MG, 1X/DAY
     Dates: start: 20160519, end: 20160530
  10. VANCOMYCIN [Suspect]
     Active Substance: VANCOMYCIN
     Dosage: 1 G, EVERY 12 HOURS
     Dates: start: 20160530, end: 20160620
  11. CEFUROXIME. [Suspect]
     Active Substance: CEFUROXIME
     Dosage: 1.5 MG, EVERY 12 HOURS
     Dates: start: 20160502, end: 20160505

REACTIONS (22)
  - Hypertensive crisis [Recovered/Resolved]
  - Rash [Recovered/Resolved]
  - Pruritus [Recovered/Resolved]
  - Wheezing [Recovered/Resolved]
  - Hyperaemia [Recovered/Resolved]
  - Respiratory distress [Recovered/Resolved]
  - Bone marrow toxicity [Recovered/Resolved]
  - Tongue dry [Recovered/Resolved]
  - Swollen tongue [Recovered/Resolved]
  - Swelling [Recovered/Resolved]
  - Skin burning sensation [Recovered/Resolved]
  - Throat irritation [Recovered/Resolved]
  - Malaise [Recovered/Resolved]
  - Headache [Recovered/Resolved]
  - Suffocation feeling [Recovered/Resolved]
  - Bronchospasm [Recovered/Resolved]
  - Dyspnoea [Recovered/Resolved]
  - Hypersensitivity [Recovered/Resolved]
  - Pyrexia [Recovered/Resolved]
  - Erythema [Recovered/Resolved]
  - Chest pain [Recovered/Resolved]
  - Pancytopenia [Recovered/Resolved]

NARRATIVE: CASE EVENT DATE: 20160505
